FAERS Safety Report 22342721 (Version 2)
Quarter: 2023Q2

REPORT INFORMATION
  Report Type: Spontaneous
  Country: JP (occurrence: JP)
  Receive Date: 20230519
  Receipt Date: 20230620
  Transmission Date: 20230722
  Serious: Yes (Hospitalization, Other)
  Sender: FDA-Public Use
  Company Number: JP-PFIZER INC-PV202300031693

PATIENT
  Age: 11 Year
  Sex: Female
  Weight: 27.2 kg

DRUGS (4)
  1. SIROLIMUS [Suspect]
     Active Substance: SIROLIMUS
     Indication: Klippel-Trenaunay syndrome
     Dosage: 1 MG, 1X/DAY (1 MG,1 D)
     Route: 048
     Dates: start: 20221009, end: 20221113
  2. SIROLIMUS [Suspect]
     Active Substance: SIROLIMUS
     Indication: Lymphangioma
  3. BIO THREE OD [Concomitant]
     Indication: Diarrhoea
     Dosage: 1 DF, 3X/DAY (1 DOSAGE FORMS,8 HR)
     Route: 048
     Dates: start: 20221010, end: 20221113
  4. BIO THREE OD [Concomitant]
     Indication: Faeces soft

REACTIONS (7)
  - Cellulitis [Recovered/Resolved]
  - Abscess bacterial [Recovered/Resolved]
  - Subcutaneous abscess [Recovered/Resolved]
  - Escherichia infection [Recovered/Resolved]
  - Pain in extremity [Unknown]
  - Off label use [Unknown]
  - Off label use [Unknown]

NARRATIVE: CASE EVENT DATE: 20220101
